FAERS Safety Report 7407291-3 (Version None)
Quarter: 2011Q2

REPORT INFORMATION
  Report Type: 
  Country: None (occurrence: None)
  Receive Date: 20110411
  Receipt Date: 20110330
  Transmission Date: 20111010
  Serious: Yes (Hospitalization)
  Sender: FDA-Public Use
  Company Number: PHHY2011JP26559

PATIENT
  Age: 86 Year
  Sex: Male

DRUGS (3)
  1. ADALAT [Concomitant]
     Route: 048
  2. RASILEZ [Suspect]
     Indication: HYPERTENSION
     Dosage: 150 MG, DAILY
     Route: 048
     Dates: start: 20101118, end: 20110322
  3. ATELEC [Concomitant]
     Route: 048
     Dates: start: 20110217, end: 20110301

REACTIONS (2)
  - LIVER DISORDER [None]
  - CONDITION AGGRAVATED [None]
